FAERS Safety Report 21286766 (Version 1)
Quarter: 2022Q3

REPORT INFORMATION
  Report Type: Spontaneous
  Country: US (occurrence: None)
  Receive Date: 20220902
  Receipt Date: 20220902
  Transmission Date: 20221027
  Serious: No
  Sender: FDA-Public Use
  Company Number: None

PATIENT
  Age: 73 Year
  Sex: Female
  Weight: 76.2 kg

DRUGS (30)
  1. LENALIDOMIDE [Suspect]
     Active Substance: LENALIDOMIDE
     Indication: Plasma cell myeloma
     Dosage: FREQUENCY : DAILY; (21D ON 7D OFF)?
     Route: 048
     Dates: start: 202110
  2. ACYCLOVIR [Concomitant]
     Active Substance: ACYCLOVIR
  3. ALBUTEROL [Concomitant]
     Active Substance: ALBUTEROL
  4. AMITRIPTYLINE [Concomitant]
     Active Substance: AMITRIPTYLINE
  5. ASPIRIN [Concomitant]
     Active Substance: ASPIRIN
  6. CITALOPRAM [Concomitant]
     Active Substance: CITALOPRAM HYDROBROMIDE
  7. CLOBETASOL [Concomitant]
     Active Substance: CLOBETASOL
  8. CLONAZEPAM [Concomitant]
     Active Substance: CLONAZEPAM
  9. CYCLOBENZAPRINE [Concomitant]
     Active Substance: CYCLOBENZAPRINE
  10. DIPHENHYDRAMINE [Concomitant]
     Active Substance: DIPHENHYDRAMINE
  11. DOXYCYCLINE [Concomitant]
     Active Substance: DOXYCYCLINE
  12. DULCOLAX NOS [Concomitant]
     Active Substance: BISACODYL OR DOCUSATE SODIUM
  13. EPINEPHRINE [Concomitant]
     Active Substance: EPINEPHRINE
  14. FAMOTIDINE [Concomitant]
     Active Substance: FAMOTIDINE
  15. FEXOFENADINE [Concomitant]
     Active Substance: FEXOFENADINE HYDROCHLORIDE
  16. FIBER [Concomitant]
     Active Substance: PSYLLIUM HUSK
  17. FLUTICASONE [Concomitant]
     Active Substance: FLUTICASONE
  18. GABAPENTIN [Concomitant]
     Active Substance: GABAPENTIN
  19. GAMMAGARD [Concomitant]
     Active Substance: HUMAN IMMUNOGLOBULIN G
  20. ACETAMINOPHEN\HYDROCODONE [Concomitant]
     Active Substance: ACETAMINOPHEN\HYDROCODONE
  21. HYDROXYZINE [Concomitant]
     Active Substance: HYDROXYZINE HYDROCHLORIDE
  22. LAMOTRIGINE [Concomitant]
     Active Substance: LAMOTRIGINE
  23. LURASIDONE [Concomitant]
     Active Substance: LURASIDONE
  24. NEXIUM [Concomitant]
     Active Substance: ESOMEPRAZOLE MAGNESIUM
  25. NICOTINE [Concomitant]
     Active Substance: NICOTINE
  26. NYSTATIN [Concomitant]
     Active Substance: NYSTATIN
  27. SODIUM CHLORIDE [Concomitant]
     Active Substance: SODIUM CHLORIDE
  28. STOOL SOFTENER/LAXATIVE [Concomitant]
  29. TRAZODONE [Concomitant]
     Active Substance: TRAZODONE HYDROCHLORIDE
  30. XYZAL ALLERGY 24HR [Concomitant]
     Active Substance: LEVOCETIRIZINE DIHYDROCHLORIDE

REACTIONS (3)
  - Neuropathy peripheral [None]
  - Headache [None]
  - Pain [None]
